FAERS Safety Report 17915684 (Version 1)
Quarter: 2020Q2

REPORT INFORMATION
  Report Type: Spontaneous
  Country: US (occurrence: US)
  Receive Date: 20200619
  Receipt Date: 20200619
  Transmission Date: 20200714
  Serious: No
  Sender: FDA-Public Use
  Company Number: US-TEVA-2020-US-1788821

PATIENT
  Sex: Female

DRUGS (2)
  1. LISINOPRIL. [Suspect]
     Active Substance: LISINOPRIL
     Dosage: LISINOPRIL IN THE MORNING
     Route: 065
     Dates: end: 20200523
  2. METOPROLOL. [Suspect]
     Active Substance: METOPROLOL
     Dosage: METOPROLOL 50 MG  AT NIGHT
     Route: 065
     Dates: start: 20200521, end: 20200523

REACTIONS (3)
  - Dizziness [Unknown]
  - Nausea [Unknown]
  - Chest pain [Unknown]
